FAERS Safety Report 10647682 (Version 2)
Quarter: 2014Q4

REPORT INFORMATION
  Report Type: Report from Study
  Country: JP (occurrence: JP)
  Receive Date: 20141212
  Receipt Date: 20141229
  Transmission Date: 20150529
  Serious: Yes (Hospitalization)
  Sender: FDA-Public Use
  Company Number: JP-ROCHE-1504232

PATIENT
  Age: 61 Year
  Sex: Male

DRUGS (6)
  1. GLUFAST [Concomitant]
     Active Substance: MITIGLINIDE
  2. RANIBIZUMAB [Suspect]
     Active Substance: RANIBIZUMAB
     Indication: DIABETIC RETINAL OEDEMA
     Dosage: MOST RECENT DOSE PRIOR TO SAE:20/NOV/2014
     Route: 050
     Dates: start: 20140702, end: 20140702
  3. GLACTIV [Concomitant]
     Active Substance: SITAGLIPTIN
  4. METGLUCO [Concomitant]
     Active Substance: METFORMIN HYDROCHLORIDE
  5. RANIBIZUMAB [Suspect]
     Active Substance: RANIBIZUMAB
     Dosage: MOST RECENT DOSE PRIOR TO SAE: 20/NOV/2014
     Route: 050
     Dates: start: 20141120, end: 20141120
  6. LEVOFLOXACIN HEMIHYDRATE [Concomitant]
     Active Substance: LEVOFLOXACIN
     Route: 065
     Dates: start: 20140629, end: 20141123

REACTIONS (1)
  - Cerebral infarction [Recovering/Resolving]

NARRATIVE: CASE EVENT DATE: 20141123
